FAERS Safety Report 5771243-X (Version None)
Quarter: 2008Q2

REPORT INFORMATION
  Report Type: 
  Country: None (occurrence: None)
  Receive Date: 20080613
  Receipt Date: 20080530
  Transmission Date: 20081010
  Serious: No
  Sender: FDA-Public Use
  Company Number: US-ABBOTT-08P-163-0454613-00

PATIENT
  Sex: Female
  Weight: 99.88 kg

DRUGS (31)
  1. HUMIRA [Suspect]
     Indication: RHEUMATOID ARTHRITIS
     Dates: start: 20080530
  2. PANTOPRAZOLE [Concomitant]
     Indication: SMALL INTESTINAL HAEMORRHAGE
     Route: 048
     Dates: start: 20060101
  3. NAPROXEN SODIUM [Concomitant]
     Indication: OSTEOARTHRITIS
     Route: 048
     Dates: start: 20040101
  4. NITROFURANTOIN [Concomitant]
     Indication: CYSTITIS
     Route: 048
     Dates: start: 20030101
  5. FAMOTIDINE [Concomitant]
     Indication: GASTROINTESTINAL ULCER
     Route: 048
     Dates: start: 19880101
  6. NARINE [Concomitant]
     Indication: HYPERSENSITIVITY
     Route: 048
     Dates: start: 20080401
  7. TRIAMTERENE [Concomitant]
     Indication: BLOOD PRESSURE
     Dosage: 25MG/37.5 MG DAILY
     Route: 048
     Dates: start: 19780101
  8. LEVOTHYROXINE SODIUM [Concomitant]
     Indication: OPEN WOUND
     Route: 048
     Dates: start: 19500101
  9. PROPACET 100 [Concomitant]
     Indication: PAIN
     Route: 048
     Dates: start: 20070301
  10. SERETIDE [Concomitant]
     Indication: ASTHMA
     Dosage: 250/50 TWICE DAILY
     Route: 055
     Dates: start: 20010101
  11. SALBUTAMOL SULFATE [Concomitant]
     Indication: ASTHMA
     Route: 055
     Dates: start: 20010101
  12. SUMATRIPTAN SUCCINATE [Concomitant]
     Indication: MIGRAINE
     Route: 048
     Dates: start: 20050101
  13. METHOTREXATE [Concomitant]
     Indication: RHEUMATOID ARTHRITIS
     Route: 050
     Dates: start: 20080201
  14. FOLIC ACID [Concomitant]
     Indication: RHEUMATOID ARTHRITIS
     Route: 048
     Dates: start: 20080201
  15. LOPERAMIDE HYDROCHLORIDE [Concomitant]
     Indication: DIARRHOEA
     Route: 048
     Dates: start: 19960101
  16. ERGOCALCIFEROL [Concomitant]
     Indication: OSTEOPOROSIS
     Route: 048
     Dates: start: 20070301
  17. ICAPS [Concomitant]
     Indication: VITAMIN SUPPLEMENTATION
     Route: 048
     Dates: start: 20080301
  18. LIPOFLAVONOID [Concomitant]
     Indication: TINNITUS
     Route: 048
     Dates: start: 20080301
  19. LIPOFLAVONOID [Concomitant]
     Indication: BALANCE DISORDER
  20. RETINOL [Concomitant]
     Indication: MACULAR DEGENERATION
     Route: 048
     Dates: start: 19980101
  21. VACCINIUM MYRTILLUS [Concomitant]
     Indication: MACULAR DEGENERATION
     Route: 048
     Dates: start: 19980101
  22. PROGESTERONE [Concomitant]
     Indication: MACULAR DEGENERATION
     Route: 048
     Dates: start: 19980101
  23. B-KOMPLEX [Concomitant]
     Indication: MACULAR DEGENERATION
     Route: 048
     Dates: start: 19980101
  24. TOCOPHEROL CONCENTRATE CAP [Concomitant]
     Indication: MACULAR DEGENERATION
     Route: 048
     Dates: start: 19980101
  25. CALCIUM CARBONATE [Concomitant]
     Indication: GASTRIC DISORDER
  26. CALCIUM CARBONATE [Concomitant]
     Indication: MINERAL SUPPLEMENTATION
  27. CALCIUM [Concomitant]
     Indication: OSTEOPOROSIS
     Route: 048
     Dates: start: 19780101
  28. PAMIDRONATE DISODIUM [Concomitant]
     Indication: OSTEOPOROSIS
     Dosage: INFUSION (ROUTE)
     Dates: start: 20080101
  29. GLUCOSAMINE [Concomitant]
     Indication: RHEUMATOID ARTHRITIS
     Route: 048
     Dates: start: 19980101
  30. CYANOCOBALAMIN [Concomitant]
     Indication: ANAEMIA
     Route: 048
     Dates: start: 19980101
  31. FERROUS SULFATE TAB [Concomitant]
     Indication: ANAEMIA
     Route: 048
     Dates: start: 20060901

REACTIONS (1)
  - ACCIDENTAL EXPOSURE [None]
